FAERS Safety Report 18484706 (Version 1)
Quarter: 2020Q4

REPORT INFORMATION
  Report Type: Spontaneous
  Country: US (occurrence: US)
  Receive Date: 20201109
  Receipt Date: 20201109
  Transmission Date: 20210114
  Serious: Yes (Other)
  Sender: FDA-Public Use
  Company Number: None

PATIENT
  Age: 31 Year
  Sex: Female

DRUGS (1)
  1. AMBRISENTAN TAB 10MG [Suspect]
     Active Substance: AMBRISENTAN
     Route: 048
     Dates: start: 202010

REACTIONS (3)
  - Nausea [None]
  - Vomiting [None]
  - Flushing [None]

NARRATIVE: CASE EVENT DATE: 20201006
